FAERS Safety Report 12876874 (Version 2)
Quarter: 2016Q4

REPORT INFORMATION
  Report Type: Spontaneous
  Country: JP (occurrence: JP)
  Receive Date: 20161024
  Receipt Date: 20161207
  Transmission Date: 20170207
  Serious: No
  Sender: FDA-Public Use
  Company Number: JP-GLAXOSMITHKLINE-JP2016JPN153430

PATIENT
  Age: 0 Day
  Sex: Male

DRUGS (13)
  1. SAMITREL [Suspect]
     Active Substance: ATOVAQUONE
     Indication: ANTIFUNGAL PROPHYLAXIS
     Dosage: 1500 MG, UNK
     Route: 064
     Dates: start: 20160118, end: 20160330
  2. KAYTWO [Concomitant]
     Active Substance: MENATETRENONE
     Indication: VITAMIN SUPPLEMENTATION
     Dosage: 2 MG, UNK
     Dates: start: 20160329, end: 20160329
  3. FAMOTIDINE. [Concomitant]
     Active Substance: FAMOTIDINE
     Route: 064
  4. PREDONINE [Suspect]
     Active Substance: PREDNISOLONE\PREDNISOLONE ACETATE\PREDNISOLONE SODIUM SUCCINATE
     Dosage: 70 MG, UNK
     Route: 064
     Dates: start: 20160202
  5. SOL-MELCORT [Suspect]
     Active Substance: METHYLPREDNISOLONE SODIUM SUCCINATE
     Indication: NEPHROTIC SYNDROME
     Dosage: 1000 MG, UNK
     Route: 064
     Dates: start: 20160105, end: 20160107
  6. PREDONINE [Suspect]
     Active Substance: PREDNISOLONE\PREDNISOLONE ACETATE\PREDNISOLONE SODIUM SUCCINATE
     Indication: NEPHROTIC SYNDROME
     Dosage: 70 MG, UNK
     Route: 064
     Dates: start: 20160108
  7. PREDONINE [Suspect]
     Active Substance: PREDNISOLONE\PREDNISOLONE ACETATE\PREDNISOLONE SODIUM SUCCINATE
     Dosage: 70 MG, UNK
     Route: 064
     Dates: end: 20160112
  8. PREDONINE [Suspect]
     Active Substance: PREDNISOLONE\PREDNISOLONE ACETATE\PREDNISOLONE SODIUM SUCCINATE
     Indication: NEPHROTIC SYNDROME
     Dosage: UNK
     Route: 064
     Dates: start: 20160113, end: 20160201
  9. ERYTHROCIN LACTOBIONATE [Concomitant]
     Active Substance: ERYTHROMYCIN LACTOBIONATE
     Indication: PROPHYLAXIS
     Dosage: UNK
     Route: 047
     Dates: start: 20160329
  10. MAGMITT [Concomitant]
     Active Substance: MAGNESIUM OXIDE
     Route: 064
  11. PREDONINE [Suspect]
     Active Substance: PREDNISOLONE\PREDNISOLONE ACETATE\PREDNISOLONE SODIUM SUCCINATE
     Dosage: 70 MG, UNK
     Route: 064
     Dates: start: 20160317
  12. PREDONINE [Suspect]
     Active Substance: PREDNISOLONE\PREDNISOLONE ACETATE\PREDNISOLONE SODIUM SUCCINATE
     Dosage: 70 MG, UNK
     Route: 064
  13. KAYTWO [Concomitant]
     Active Substance: MENATETRENONE
     Dosage: 2 MG, UNK
     Dates: start: 20160403, end: 20160403

REACTIONS (4)
  - Accessory auricle [Not Recovered/Not Resolved]
  - Low birth weight baby [Unknown]
  - Foetal exposure during pregnancy [Unknown]
  - Jaundice neonatal [Recovered/Resolved]

NARRATIVE: CASE EVENT DATE: 20160329
